FAERS Safety Report 8607622-2 (Version None)
Quarter: 2012Q3

REPORT INFORMATION
  Report Type: 
  Country: None (occurrence: None)
  Receive Date: 20120821
  Receipt Date: 20120813
  Transmission Date: 20120928
  Serious: Yes (Hospitalization, Other)
  Sender: FDA-Public Use
  Company Number: SE-BAYER-2012-068815

PATIENT
  Age: 32 Year
  Sex: Female
  Weight: 57 kg

DRUGS (2)
  1. MIRENA [Suspect]
     Indication: CONTRACEPTION
     Dosage: 20 MCG/24HR, CONT
     Route: 015
     Dates: start: 20120111, end: 20120113
  2. NOVA T [Suspect]
     Indication: CONTRACEPTION
     Dosage: UNK
     Route: 015
     Dates: start: 20111205, end: 20120111

REACTIONS (21)
  - PYREXIA [None]
  - PRESYNCOPE [None]
  - PALLOR [None]
  - UTERINE PERFORATION [None]
  - ABSCESS [None]
  - PERITONITIS [None]
  - INFLUENZA LIKE ILLNESS [None]
  - STREPTOCOCCUS TEST POSITIVE [None]
  - NAUSEA [None]
  - SYNCOPE [None]
  - POST PROCEDURAL HAEMORRHAGE [None]
  - VAGINAL DISCHARGE [None]
  - DIARRHOEA [None]
  - GENITAL HAEMORRHAGE [None]
  - DIZZINESS [None]
  - OROPHARYNGEAL PAIN [None]
  - ABDOMINAL PAIN [None]
  - PAIN [None]
  - FATIGUE [None]
  - PELVIC INFLAMMATORY DISEASE [None]
  - OVARIAN CYST [None]
